FAERS Safety Report 22606883 (Version 1)
Quarter: 2023Q2

REPORT INFORMATION
  Report Type: Spontaneous
  Country: US (occurrence: None)
  Receive Date: 20230608
  Receipt Date: 20230608
  Transmission Date: 20230721
  Serious: Yes (Other)
  Sender: FDA-Public Use
  Company Number: None

PATIENT
  Age: 58 Year
  Sex: Male
  Weight: 78.75 kg

DRUGS (9)
  1. SODIUM CHLORIDE [Suspect]
     Active Substance: SODIUM CHLORIDE
     Indication: Acute sinusitis
     Dosage: OTHER QUANTITY : 1.5 OUNCE(S);?OTHER FREQUENCY : AS NEEDED;?OTHER ROUTE : NASAL SPRAY;?
     Route: 050
     Dates: start: 20230228, end: 20230228
  2. ROSUVASTATIN [Concomitant]
  3. TESTOSTERONE [Concomitant]
     Active Substance: TESTOSTERONE
  4. C-Pac [Concomitant]
  5. Centrum [Concomitant]
  6. ZINC [Concomitant]
     Active Substance: ZINC
  7. VITAMIN D3 [Concomitant]
     Active Substance: CHOLECALCIFEROL
  8. C [Concomitant]
  9. SODIUM CHLORIDE [Suspect]
     Active Substance: SODIUM CHLORIDE
     Indication: Chronic sinusitis

REACTIONS (7)
  - Hypersensitivity [None]
  - Tongue erythema [None]
  - Pharyngeal erythema [None]
  - Nasal pruritus [None]
  - Throat irritation [None]
  - Capillary disorder [None]
  - Reaction to excipient [None]

NARRATIVE: CASE EVENT DATE: 20230228
